FAERS Safety Report 19322075 (Version 3)
Quarter: 2022Q2

REPORT INFORMATION
  Report Type: Report from Study
  Country: JP (occurrence: JP)
  Receive Date: 20210528
  Receipt Date: 20220428
  Transmission Date: 20220720
  Serious: No
  Sender: FDA-Public Use
  Company Number: JP-ALXN-A202105856AA

PATIENT
  Age: 8 Year
  Sex: Male
  Weight: 23.3 kg

DRUGS (18)
  1. SOLIRIS [Suspect]
     Active Substance: ECULIZUMAB
     Dosage: 600 MG, Q2W
     Route: 042
     Dates: end: 20210506
  2. SOLIRIS [Suspect]
     Active Substance: ECULIZUMAB
     Indication: Atypical haemolytic uraemic syndrome
     Dosage: 300 MG, UNK
     Route: 042
     Dates: start: 20121114
  3. ULTOMIRIS [Suspect]
     Active Substance: RAVULIZUMAB-CWVZ
     Indication: Atypical haemolytic uraemic syndrome
     Dosage: 900 MG, Q2W
     Route: 042
     Dates: start: 20210519
  4. ULTOMIRIS [Suspect]
     Active Substance: RAVULIZUMAB-CWVZ
     Dosage: 2100 MG, Q56
     Route: 042
     Dates: start: 20210603
  5. CEFZON                             /01130201/ [Concomitant]
     Indication: Infection prophylaxis
     Dosage: 20 MG, QD
     Route: 048
     Dates: start: 20121203
  6. FLOPROPIONE [Concomitant]
     Active Substance: FLOPROPIONE
     Indication: Bile duct stone
     Dosage: 24 MG, TID
     Route: 048
     Dates: start: 20130119
  7. ENALAPRIL MALEATE [Concomitant]
     Active Substance: ENALAPRIL MALEATE
     Indication: Renal hypertension
     Dosage: 2.5 MG, QD
     Route: 048
     Dates: start: 20150415
  8. KAYEXALATE [Concomitant]
     Active Substance: SODIUM POLYSTYRENE SULFONATE
     Indication: Atypical haemolytic uraemic syndrome
     Dosage: 1.5 G, BID
     Route: 048
     Dates: start: 20121126
  9. MIYA-BM [Concomitant]
     Active Substance: CLOSTRIDIUM BUTYRICUM SPORES STRAIN M-55
     Indication: Prophylaxis against diarrhoea
     Dosage: 0.6 G, TID
     Route: 048
     Dates: start: 20121126
  10. NU-LOTAN [Concomitant]
     Active Substance: LOSARTAN POTASSIUM
     Indication: Atypical haemolytic uraemic syndrome
     Dosage: 15 MG, BID
     Route: 048
     Dates: start: 20121024
  11. NU-LOTAN [Concomitant]
     Active Substance: LOSARTAN POTASSIUM
     Indication: Renal hypertension
  12. DIPYRIDAMOLE [Concomitant]
     Active Substance: DIPYRIDAMOLE
     Indication: Renal hypertension
     Dosage: 50 MG, BID
     Route: 048
     Dates: start: 20211228
  13. PREDNISOLONE [Concomitant]
     Active Substance: PREDNISOLONE
     Indication: Glomerulonephritis membranoproliferative
     Dosage: 5 MG, QD
     Route: 048
     Dates: start: 20210723
  14. ENALAPRIL [Concomitant]
     Active Substance: ENALAPRIL
     Indication: Atypical haemolytic uraemic syndrome
     Dosage: 1 MG, QD
     Route: 048
     Dates: start: 20121030
  15. NIFEDIPINE [Concomitant]
     Active Substance: NIFEDIPINE
     Indication: Atypical haemolytic uraemic syndrome
     Dosage: 19 MG, BID
     Route: 048
     Dates: start: 20121115
  16. NIFEDIPINE [Concomitant]
     Active Substance: NIFEDIPINE
     Indication: Renal hypertension
  17. HERBALS [Concomitant]
     Active Substance: HERBALS
     Indication: Bile duct stone
     Dosage: 1.5 G, TID
     Route: 048
     Dates: start: 20130119
  18. URSO                               /00465701/ [Concomitant]
     Indication: Bile duct stone
     Dosage: 60 MG, TID
     Route: 048
     Dates: start: 20121029

REACTIONS (1)
  - Infusion related reaction [Recovered/Resolved]

NARRATIVE: CASE EVENT DATE: 20210519
